FAERS Safety Report 20664755 (Version 3)
Quarter: 2023Q1

REPORT INFORMATION
  Report Type: Spontaneous
  Country: US (occurrence: US)
  Receive Date: 20220401
  Receipt Date: 20230109
  Transmission Date: 20230418
  Serious: No
  Sender: FDA-Public Use
  Company Number: US-PFIZER INC-202200229122

PATIENT
  Age: 7 Year
  Sex: Male

DRUGS (10)
  1. PALBOCICLIB [Suspect]
     Active Substance: PALBOCICLIB
     Indication: Abdominal mass
     Dosage: UNK
     Dates: start: 20200820
  2. PALBOCICLIB [Suspect]
     Active Substance: PALBOCICLIB
     Indication: Lymphadenopathy
  3. PALBOCICLIB [Suspect]
     Active Substance: PALBOCICLIB
     Indication: Alpha 1 foetoprotein increased
  4. PALBOCICLIB [Suspect]
     Active Substance: PALBOCICLIB
     Indication: Pancreatoblastoma
  5. IRINOTECAN HYDROCHLORIDE [Suspect]
     Active Substance: IRINOTECAN HYDROCHLORIDE
     Indication: Abdominal mass
     Dosage: UNK
     Dates: start: 20200820
  6. IRINOTECAN HYDROCHLORIDE [Suspect]
     Active Substance: IRINOTECAN HYDROCHLORIDE
     Indication: Lymphadenopathy
  7. TEMOZOLOMIDE [Suspect]
     Active Substance: TEMOZOLOMIDE
     Indication: Abdominal mass
     Dosage: UNK
     Dates: start: 20020820
  8. TEMOZOLOMIDE [Suspect]
     Active Substance: TEMOZOLOMIDE
     Indication: Lymphadenopathy
  9. TEMOZOLOMIDE [Suspect]
     Active Substance: TEMOZOLOMIDE
     Indication: Alpha 1 foetoprotein increased
  10. TEMOZOLOMIDE [Suspect]
     Active Substance: TEMOZOLOMIDE
     Indication: Pancreatoblastoma

REACTIONS (10)
  - Skin lesion [Recovering/Resolving]
  - Off label use [Unknown]
  - Aspartate aminotransferase increased [Unknown]
  - Basophil count increased [Unknown]
  - Blood glucose increased [Unknown]
  - Blood potassium increased [Unknown]
  - Eosinophil count increased [Unknown]
  - Haemoglobin decreased [Unknown]
  - Platelet count increased [Unknown]
  - Red blood cell count decreased [Unknown]

NARRATIVE: CASE EVENT DATE: 20211206
